FAERS Safety Report 4571500-9 (Version None)
Quarter: 2005Q1

REPORT INFORMATION
  Report Type: 
  Country: None (occurrence: None)
  Receive Date: 20050207
  Receipt Date: 20050202
  Transmission Date: 20050727
  Serious: Yes (Hospitalization, Other)
  Sender: FDA-Public Use
  Company Number: PHBS2005BR01715

PATIENT
  Age: 75 Year
  Sex: Male

DRUGS (1)
  1. POTASSIUM CHLORIDE [Suspect]
     Indication: MUSCLE SPASMS
     Dosage: 2 DF, QMO
     Route: 048

REACTIONS (2)
  - INFARCTION [None]
  - MUSCLE SPASMS [None]
